FAERS Safety Report 9754055 (Version 1)
Quarter: 2013Q4

REPORT INFORMATION
  Report Type: Spontaneous
  Country: US (occurrence: US)
  Receive Date: 20131213
  Receipt Date: 20131213
  Transmission Date: 20140711
  Serious: No
  Sender: FDA-Public Use
  Company Number: US-GLAXOSMITHKLINE-A1014160A

PATIENT
  Age: 34 Year
  Sex: Male

DRUGS (3)
  1. NICORETTE NICOTINE POLACRILEX LOZENGE, 2MG [Suspect]
     Indication: EX-TOBACCO USER
     Dates: start: 20130216, end: 20130217
  2. NICORETTE NICOTINE POLACRILEX LOZENGE, 4MG [Suspect]
     Dates: start: 20130216, end: 20130217
  3. NICODERM CQ CLEAR 21MG [Suspect]
     Indication: EX-TOBACCO USER

REACTIONS (3)
  - Headache [Recovered/Resolved]
  - Nausea [Recovered/Resolved]
  - Hyperhidrosis [Recovered/Resolved]
